FAERS Safety Report 11288092 (Version 1)
Quarter: 2015Q3

REPORT INFORMATION
  Report Type: Spontaneous
  Country: US (occurrence: US)
  Receive Date: 20150721
  Receipt Date: 20150721
  Transmission Date: 20151125
  Serious: No
  Sender: FDA-Public Use
  Company Number: ALCN2015US003739

PATIENT
  Age: 55 Year
  Sex: Female

DRUGS (1)
  1. ICAPS MV [Suspect]
     Active Substance: MINERALS\VITAMINS
     Indication: NUTRITIONAL SUPPLEMENTATION
     Dosage: 1 DF, UNK
     Route: 048
     Dates: end: 20150608

REACTIONS (1)
  - Drug ineffective [Recovered/Resolved]
